FAERS Safety Report 8849012 (Version 2)
Quarter: 2012Q4

REPORT INFORMATION
  Report Type: 
  Country: IT (occurrence: IT)
  Receive Date: 20121019
  Receipt Date: 20121112
  Transmission Date: 20130627
  Serious: Yes (Hospitalization, Other)
  Sender: FDA-Public Use
  Company Number: IT-ELI_LILLY_AND_COMPANY-IT201210002114

PATIENT
  Age: 31 Year
  Sex: Male

DRUGS (5)
  1. ZYPREXA [Suspect]
     Indication: BIPOLAR DISORDER
     Dosage: 15 mg, qd
     Route: 048
     Dates: start: 20120601, end: 20120820
  2. LORAZEPAM [Concomitant]
     Indication: INSOMNIA
     Dosage: 1 mg, qd
     Dates: start: 20120701, end: 20120820
  3. DIAZEPAM [Concomitant]
     Indication: ANXIETY
     Dosage: 30 Gtt, qd
     Dates: start: 20120701, end: 20120820
  4. ALCOVER [Concomitant]
     Indication: PROPHYLAXIS
  5. ALCOHOL [Concomitant]
     Route: 048

REACTIONS (5)
  - Hyperthermia [Recovering/Resolving]
  - Drug abuse [Recovering/Resolving]
  - Rhabdomyolysis [Recovering/Resolving]
  - Sopor [Recovering/Resolving]
  - Drug interaction [Recovering/Resolving]
